FAERS Safety Report 7578825-3 (Version None)
Quarter: 2011Q2

REPORT INFORMATION
  Report Type: 
  Country: None (occurrence: None)
  Receive Date: 20110628
  Receipt Date: 20110621
  Transmission Date: 20111010
  Serious: Yes (Other)
  Sender: FDA-Public Use
  Company Number: IT-BAXTER-2011BH020549

PATIENT
  Age: 71 Year
  Sex: Female

DRUGS (2)
  1. CISPLATIN [Suspect]
     Indication: OVARIAN EPITHELIAL CANCER
     Route: 065
  2. CYCLOPHOSPHAMIDE [Suspect]
     Indication: OVARIAN EPITHELIAL CANCER
     Route: 065

REACTIONS (1)
  - PRINZMETAL ANGINA [None]
